FAERS Safety Report 17939799 (Version 2)
Quarter: 2020Q4

REPORT INFORMATION
  Report Type: Report from Study
  Country: None (occurrence: US)
  Receive Date: 20200625
  Receipt Date: 20201017
  Transmission Date: 20210113
  Serious: Yes (Hospitalization, Other)
  Sender: FDA-Public Use
  Company Number: US-ABBVIE-20K-163-3381231-00

PATIENT
  Age: 57 Year
  Sex: Female
  Weight: 72.64 kg

DRUGS (1)
  1. HUMIRA [Suspect]
     Active Substance: ADALIMUMAB
     Indication: COLITIS ULCERATIVE
     Route: 058
     Dates: start: 20190619

REACTIONS (17)
  - Night sweats [Unknown]
  - Headache [Recovered/Resolved]
  - Subcutaneous abscess [Unknown]
  - Fatigue [Unknown]
  - Constipation [Not Recovered/Not Resolved]
  - Fatigue [Recovered/Resolved]
  - Staphylococcal infection [Recovered/Resolved]
  - Adverse food reaction [Not Recovered/Not Resolved]
  - Menopausal symptoms [Unknown]
  - Hot flush [Unknown]
  - Poor quality sleep [Not Recovered/Not Resolved]
  - Depressed mood [Unknown]
  - Arthralgia [Recovered/Resolved]
  - Erythema [Not Recovered/Not Resolved]
  - Arthralgia [Recovered/Resolved]
  - Headache [Recovered/Resolved]
  - Diarrhoea [Unknown]

NARRATIVE: CASE EVENT DATE: 2019
